FAERS Safety Report 11213260 (Version 1)
Quarter: 2015Q2

REPORT INFORMATION
  Report Type: Spontaneous
  Country: US (occurrence: None)
  Receive Date: 20150622
  Receipt Date: 20150622
  Transmission Date: 20150821
  Serious: Yes (Other)
  Sender: FDA-Public Use
  Company Number: None

PATIENT
  Age: 21 Year
  Sex: Female

DRUGS (2)
  1. NEXPLANON [Suspect]
     Active Substance: ETONOGESTREL
     Indication: CONTRACEPTION
     Dosage: IMPLANT?IMPLANT?GIVEN INTO/UNDER THE SKIN
     Dates: start: 20150311, end: 20150621
  2. NEXPLANON [Concomitant]
     Active Substance: ETONOGESTREL

REACTIONS (5)
  - Insomnia [None]
  - Abdominal pain upper [None]
  - Fatigue [None]
  - Thirst [None]
  - Food intolerance [None]

NARRATIVE: CASE EVENT DATE: 20150621
